FAERS Safety Report 8435117-8 (Version None)
Quarter: 2012Q2

REPORT INFORMATION
  Report Type: 
  Country: None (occurrence: None)
  Receive Date: 20120614
  Receipt Date: 20120612
  Transmission Date: 20120825
  Serious: Yes (Death)
  Sender: FDA-Public Use
  Company Number: PHEH2012US011759

PATIENT
  Sex: Female

DRUGS (11)
  1. MAXALT [Concomitant]
     Dosage: 10 MG,
  2. VICODIN [Concomitant]
     Dosage: 500 MG
  3. ATIVAN [Concomitant]
     Dosage: 5 MG
  4. PRILOSEC [Concomitant]
     Dosage: 20 MG
  5. ARIXTRA [Concomitant]
     Dosage: 7.5/0.6
  6. VERAPAMIL [Concomitant]
     Dosage: 120 MG,
  7. FENTANYL [Concomitant]
     Dosage: 50 UG, / HR
  8. ROBAXIN [Concomitant]
     Dosage: 750 MG
  9. EXJADE [Suspect]
     Dosage: 3 DF, DAILY (1500 MG DAILY)
     Route: 048
  10. AMITRIPTYLINE HCL [Concomitant]
     Dosage: 25 MG,
  11. POTASSIUM [Concomitant]
     Dosage: 99 MG,

REACTIONS (1)
  - DEATH [None]
